FAERS Safety Report 8524363-0 (Version None)
Quarter: 2012Q3

REPORT INFORMATION
  Report Type: 
  Country: None (occurrence: None)
  Receive Date: 20120720
  Receipt Date: 20120719
  Transmission Date: 20120928
  Serious: Yes (Hospitalization)
  Sender: FDA-Public Use
  Company Number: DE-AMGEN-DEUCT2012042714

PATIENT
  Sex: Female

DRUGS (5)
  1. PANITUMUMAB [Suspect]
     Indication: OVARIAN CANCER
     Dosage: UNK
     Route: 042
     Dates: start: 20120710
  2. GEMCITABINE HYDROCHLORIDE [Concomitant]
     Indication: OVARIAN CANCER
     Dosage: UNK
     Dates: start: 20120710
  3. SODIUM CHLORIDE [Concomitant]
     Route: 042
  4. CARBOPLATIN [Concomitant]
     Indication: OVARIAN CANCER
     Dosage: UNK
     Dates: start: 20120710
  5. LOPERAMIDE [Concomitant]
     Dosage: UNK
     Dates: start: 20120710, end: 20120710

REACTIONS (4)
  - RASH [None]
  - HYPERSENSITIVITY [None]
  - PRURITUS [None]
  - FEELING HOT [None]
